FAERS Safety Report 8033391-3 (Version None)
Quarter: 2012Q1

REPORT INFORMATION
  Report Type: 
  Country: None (occurrence: None)
  Receive Date: 20120110
  Receipt Date: 20120104
  Transmission Date: 20120608
  Serious: Yes (Hospitalization, Other)
  Sender: FDA-Public Use
  Company Number: PHHY2011DE23336

PATIENT
  Sex: Female

DRUGS (19)
  1. METOPROLOL SUCCINATE [Concomitant]
     Dosage: 95 MG, BID
  2. CIPRALEX  DROPS [Concomitant]
     Dosage: 1 DF, QD
  3. BUTYLSCOPOLAMIN [Concomitant]
     Dosage: AS NEEDED
  4. CLORAZEPATE DIPOTASSIUM [Concomitant]
     Dosage: 20 MG, UNK
     Dates: start: 20110104
  5. DIOVAN [Suspect]
     Dosage: 80 MG
     Route: 048
     Dates: start: 20100301
  6. BAYOTENSIN [Concomitant]
     Dosage: UNK
     Dates: start: 20101129
  7. AMLODIPINE [Concomitant]
     Dosage: 5 MG, QD
  8. DIAZEPAM [Concomitant]
     Dosage: 4 DROPS QD IN THE MORNING , 3 DROPS QD IN THE EVENING
     Dates: start: 20111013
  9. LOPERAMIDE [Concomitant]
     Dosage: AS NEEDED
  10. INSIDON [Suspect]
     Dosage: 15 DROPS DAILY
     Dates: start: 20110218
  11. DIOVAN [Suspect]
     Dosage: 40 MG, QD
     Route: 048
  12. PREDNISOLONE [Concomitant]
     Dosage: UNK
     Dates: start: 20101128
  13. LORAZEPAM [Concomitant]
     Dosage: UNK
  14. DIAZEPAM [Concomitant]
     Dosage: 5 DROPS QD IN MORNING, 3 DROPS QD IN EVENING
     Dates: end: 20111001
  15. DIOVAN HCT [Suspect]
     Dosage: 80 MG
     Dates: start: 20101223, end: 20110108
  16. LEVOFLOXACIN [Concomitant]
     Dosage: UNK
     Dates: start: 20101126
  17. METOPROLOL SUCCINATE [Concomitant]
     Dosage: 47.5 MG, UNK
     Dates: start: 20101129
  18. CYCLOCAPS BUDESONID [Concomitant]
     Dosage: 400 UG, UNK
     Dates: start: 20101221
  19. BRONCHIKUM [Concomitant]
     Dosage: UNK
     Dates: start: 20101221

REACTIONS (15)
  - HYPERTENSIVE CRISIS [None]
  - PANIC DISORDER [None]
  - HYPERTROPHY [None]
  - BRONCHITIS [None]
  - BLOOD CHOLESTEROL INCREASED [None]
  - WHITE BLOOD CELL COUNT DECREASED [None]
  - DEPRESSION [None]
  - HYPERSENSITIVITY [None]
  - BLOOD SODIUM INCREASED [None]
  - PROTHROMBIN TIME PROLONGED [None]
  - ERYTHEMA [None]
  - OSTEOMA [None]
  - ANXIETY [None]
  - HYPERTENSION [None]
  - OVARIAN CYST [None]
